FAERS Safety Report 8851355 (Version 2)
Quarter: 2013Q1

REPORT INFORMATION
  Report Type: Spontaneous
  Country: BR (occurrence: BR)
  Receive Date: 20121022
  Receipt Date: 20130222
  Transmission Date: 20140127
  Serious: Yes (Other)
  Sender: FDA-Public Use
  Company Number: BR-AMGEN-BRASP2012025650

PATIENT
  Age: 31 Year
  Sex: Female
  Weight: 75 kg

DRUGS (7)
  1. ENBREL [Suspect]
     Indication: ANKYLOSING SPONDYLITIS
     Dosage: 50 MG, 1X/WEEK
     Route: 058
     Dates: start: 201201
  2. ENBREL [Suspect]
     Indication: RHEUMATOID ARTHRITIS
     Dosage: UNK
  3. METHOTREXATE [Concomitant]
     Dosage: (STRENGTH 2.5 MG) 9 MONTHS
  4. METHOTREXATE [Concomitant]
     Dosage: (STRENGTH 2.5 MG) 9 MONTHS
  5. NISULID [Concomitant]
     Dosage: 100 MG, 1X/DAY
     Dates: start: 2011
  6. PREDNISONE [Concomitant]
     Dosage: 5 MG, ALTERNATE DAY
     Dates: end: 20120919
  7. OMEPRAZOLE [Concomitant]
     Dosage: 20 MG, 1X/DAY

REACTIONS (22)
  - Musculoskeletal stiffness [Unknown]
  - Retching [Unknown]
  - Vomiting [Unknown]
  - Alopecia [Not Recovered/Not Resolved]
  - Trichorrhexis [Not Recovered/Not Resolved]
  - Pallor [Not Recovered/Not Resolved]
  - Arthralgia [Unknown]
  - Gait disturbance [Unknown]
  - Oropharyngeal pain [Unknown]
  - Pain in extremity [Unknown]
  - Pyrexia [Unknown]
  - Decreased immune responsiveness [Unknown]
  - Hypoaesthesia [Not Recovered/Not Resolved]
  - Erythema [Not Recovered/Not Resolved]
  - Pharyngeal inflammation [Unknown]
  - Local swelling [Not Recovered/Not Resolved]
  - Injection site mass [Unknown]
  - Drug ineffective [Unknown]
  - Injection site pain [Unknown]
  - Injection site rash [Unknown]
  - Nasopharyngitis [Not Recovered/Not Resolved]
  - Paraesthesia [Not Recovered/Not Resolved]
